FAERS Safety Report 5892667-6 (Version None)
Quarter: 2008Q3

REPORT INFORMATION
  Report Type: 
  Country: None (occurrence: None)
  Receive Date: 20080923
  Receipt Date: 20080916
  Transmission Date: 20090109
  Serious: Yes (Hospitalization)
  Sender: FDA-Public Use
  Company Number: PHHY2008JP14337

PATIENT
  Age: 41 Year
  Sex: Male

DRUGS (4)
  1. SIMULECT [Suspect]
     Indication: RENAL TRANSPLANT
     Dosage: UNK
     Route: 042
     Dates: start: 20060928
  2. TACROLIMUS [Suspect]
     Indication: RENAL TRANSPLANT
     Dosage: UNK
     Route: 048
     Dates: start: 20060901
  3. MYCOPHENOLATE MOFETIL [Suspect]
     Indication: RENAL TRANSPLANT
     Dosage: UNK
     Route: 048
     Dates: start: 20060901
  4. PREDNISOLONE [Suspect]
     Indication: RENAL TRANSPLANT
     Dosage: UNK
     Route: 048
     Dates: start: 20060901

REACTIONS (15)
  - AORTIC ANEURYSM REPAIR [None]
  - AORTIC INJURY [None]
  - BACK PAIN [None]
  - HAEMOPTYSIS [None]
  - HAEMORRHAGE [None]
  - INCISIONAL DRAINAGE [None]
  - MEDIASTINITIS [None]
  - NEPHRECTOMY [None]
  - RENAL ABSCESS [None]
  - RENAL ARTERY STENT PLACEMENT [None]
  - RETROPERITONEAL ABSCESS [None]
  - STAPHYLOCOCCAL INFECTION [None]
  - SUBCUTANEOUS ABSCESS [None]
  - VASCULAR PSEUDOANEURYSM [None]
  - WOUND INFECTION [None]
